FAERS Safety Report 7952380-8 (Version None)
Quarter: 2011Q4

REPORT INFORMATION
  Report Type: 
  Country: None (occurrence: None)
  Receive Date: 20111201
  Receipt Date: 20111123
  Transmission Date: 20120403
  Serious: Yes (Hospitalization, Disabling, Other)
  Sender: FDA-Public Use
  Company Number: BR-SANOFI-AVENTIS-2011SA077595

PATIENT
  Age: 58 Year
  Sex: Male
  Weight: 75 kg

DRUGS (7)
  1. SIMVASTATIN [Concomitant]
     Route: 048
  2. APIDRA SOLOSTAR [Suspect]
     Route: 065
     Dates: start: 20090101
  3. SOLOSTAR [Suspect]
     Indication: DEVICE THERAPY
     Dates: start: 20090101
  4. LANTUS [Suspect]
     Dosage: 8IU BEFORE BREAKFAST, 10IU BEFORE LUNCH, 8IU BEFORE DINNER
     Route: 065
     Dates: start: 20090101
  5. SOLOSTAR [Suspect]
     Dates: start: 20090101
  6. ALL OTHER THERAPEUTIC PRODUCTS [Concomitant]
     Indication: INSOMNIA
     Route: 048
  7. FLUOXETINE [Concomitant]
     Indication: ANTIDEPRESSANT THERAPY
     Route: 048

REACTIONS (5)
  - MUSCULOSKELETAL PAIN [None]
  - ISCHAEMIC STROKE [None]
  - PAIN IN EXTREMITY [None]
  - MOBILITY DECREASED [None]
  - SPEECH DISORDER [None]
